FAERS Safety Report 14558818 (Version 1)
Quarter: 2018Q1

REPORT INFORMATION
  Report Type: Spontaneous
  Country: CZ (occurrence: CZ)
  Receive Date: 20180221
  Receipt Date: 20180221
  Transmission Date: 20180509
  Serious: Yes (Other)
  Sender: FDA-Public Use
  Company Number: CZ-BAYER-2018-032090

PATIENT
  Age: 32 Year
  Sex: Female

DRUGS (3)
  1. MOMETASONE FUROATE. [Concomitant]
     Active Substance: MOMETASONE FUROATE
     Indication: EAR INFECTION
     Dosage: UNK
  2. CLARINASE REPETABS [Suspect]
     Active Substance: LORATADINE\PSEUDOEPHEDRINE SULFATE
     Indication: EAR INFECTION
     Dosage: 1 DF, UNK
     Dates: start: 20170301
  3. OTOBACID N [Concomitant]
     Indication: EAR INFECTION
     Dosage: UNK

REACTIONS (5)
  - Cold sweat [Unknown]
  - Palpitations [Unknown]
  - Vertigo [Unknown]
  - Nausea [Unknown]
  - Dizziness [Unknown]
